FAERS Safety Report 7649116-7 (Version None)
Quarter: 2011Q3

REPORT INFORMATION
  Report Type: 
  Country: None (occurrence: None)
  Receive Date: 20110726
  Receipt Date: 20110712
  Transmission Date: 20111222
  Serious: Yes (Hospitalization, Other)
  Sender: FDA-Public Use
  Company Number: 2011145477

PATIENT
  Age: 9 Year
  Sex: Female
  Weight: 39.4 kg

DRUGS (21)
  1. DALTEPARIN SODIUM [Suspect]
     Indication: ATRIAL THROMBOSIS
     Dosage: 5395 IU, 2X/DAY, SUBCUTANEOUS
     Route: 058
     Dates: start: 20110513, end: 20110626
  2. DALTEPARIN SODIUM [Suspect]
     Indication: ATRIAL THROMBOSIS
     Dosage: 5395 IU, 2X/DAY, SUBCUTANEOUS
     Route: 058
     Dates: start: 20110627
  3. METHOTREXATE [Suspect]
     Indication: B PRECURSOR TYPE ACUTE LEUKAEMIA
     Dosage: 15 MG, SINGLE, INTRATHECAL
     Route: 037
     Dates: start: 20110613, end: 20110613
  4. METHOTREXATE [Suspect]
     Indication: B PRECURSOR TYPE ACUTE LEUKAEMIA
     Dosage: 15 MG, SINGLE, INTRATHECAL
     Route: 037
     Dates: start: 20110620, end: 20110620
  5. METHOTREXATE [Suspect]
     Indication: B PRECURSOR TYPE ACUTE LEUKAEMIA
     Dosage: 15 MG, SINGLE, INTRATHECAL
     Route: 037
     Dates: start: 20110415, end: 20110415
  6. METHOTREXATE [Suspect]
     Indication: B PRECURSOR TYPE ACUTE LEUKAEMIA
     Dosage: 15 MG, SINGLE, INTRATHECAL
     Route: 037
     Dates: start: 20110506, end: 20110506
  7. METHOTREXATE [Suspect]
     Indication: B PRECURSOR TYPE ACUTE LEUKAEMIA
     Dosage: 15 MG, SINGLE, INTRATHECAL
     Route: 037
     Dates: start: 20110606, end: 20110606
  8. CYTARABINE [Suspect]
     Indication: B PRECURSOR TYPE ACUTE LEUKAEMIA
     Dosage: 100 MG, 3X/DAY, SUBCUTANEOUS, 100 MG, ONCE PER DAY, SUBCUTANEOUS
     Route: 058
     Dates: start: 20110613, end: 20110616
  9. CYTARABINE [Suspect]
     Indication: B PRECURSOR TYPE ACUTE LEUKAEMIA
     Dosage: 100 MG, 3X/DAY, SUBCUTANEOUS, 100 MG, ONCE PER DAY, SUBCUTANEOUS
     Route: 058
     Dates: start: 20110607, end: 20110610
  10. MERCAPTOPURINE [Suspect]
     Indication: B PRECURSOR TYPE ACUTE LEUKAEMIA
     Dosage: 75 MG, ONCE DAILY SIX DAYS PER WEEK, ORAL
     Route: 048
     Dates: start: 20110606, end: 20110619
  11. HEPARIN [Concomitant]
  12. BACTRIM [Concomitant]
  13. SODIUM CHLORIDE 0.9% [Concomitant]
  14. CYTOXAN [Suspect]
     Indication: B PRECURSOR TYPE ACUTE LEUKAEMIA
     Dosage: 1300 MG, SINGLE, INTRAVENOUS
     Route: 042
     Dates: start: 20110606, end: 20110606
  15. ZOFRAN [Concomitant]
  16. VINCRISTINE SULFATE [Suspect]
     Indication: B PRECURSOR TYPE ACUTE LEUKAEMIA
     Dosage: 2 MG, WEEKLY, INTRAVENOUS, 1.9 SINGLE, INTRAVENOUS
     Route: 042
     Dates: start: 20110408, end: 20110429
  17. VINCRISTINE SULFATE [Suspect]
     Indication: B PRECURSOR TYPE ACUTE LEUKAEMIA
     Dosage: 2 MG, WEEKLY, INTRAVENOUS, 1.9 SINGLE, INTRAVENOUS
     Route: 042
     Dates: start: 20110620, end: 20110620
  18. EMLA [Concomitant]
  19. PEG-ASPARAGINASE (ASPARAGINASE) UNKNOWN [Suspect]
     Indication: B PRECURSOR TYPE ACUTE LEUKAEMIA
     Dosage: 3150 IU, SINGLE, INTRAMUSCULAR
     Route: 030
     Dates: start: 20110620, end: 20110620
  20. ACETAMINOPHEN [Concomitant]
  21. RANITIDINE [Concomitant]

REACTIONS (22)
  - SINUSITIS [None]
  - CONSTIPATION [None]
  - LACUNAR INFARCTION [None]
  - HYPOKALAEMIA [None]
  - TACHYCARDIA [None]
  - TREMOR [None]
  - PARTIAL SEIZURES [None]
  - PLATELET COUNT DECREASED [None]
  - NEUTROPENIA [None]
  - CEREBRAL ATROPHY [None]
  - BACTERAEMIA [None]
  - HYPOTENSION [None]
  - VARICELLA VIRUS TEST POSITIVE [None]
  - PULMONARY EMBOLISM [None]
  - PYREXIA [None]
  - FUNGAL INFECTION [None]
  - HYPOALBUMINAEMIA [None]
  - BLEPHAROSPASM [None]
  - HAEMOGLOBIN DECREASED [None]
  - RASH [None]
  - SEIZURE LIKE PHENOMENA [None]
  - ATRIAL THROMBOSIS [None]
